FAERS Safety Report 5884075-9 (Version None)
Quarter: 2008Q3

REPORT INFORMATION
  Report Type: 
  Country: None (occurrence: None)
  Receive Date: 20080915
  Receipt Date: 20080905
  Transmission Date: 20090109
  Serious: Yes (Hospitalization)
  Sender: FDA-Public Use
  Company Number: US-ABBOTT-08P-163-0474817-00

PATIENT
  Age: 65 Year
  Sex: Female
  Weight: 65.83 kg

DRUGS (12)
  1. HUMIRA [Suspect]
     Indication: RHEUMATOID ARTHRITIS
     Route: 050
  2. DIGOXIN [Concomitant]
     Indication: CARDIAC DISORDER
     Route: 048
  3. ATENOLOL [Concomitant]
     Indication: CARDIAC DISORDER
     Route: 048
  4. TERIPARATIDE [Concomitant]
     Indication: OSTEOPOROSIS
  5. CLONAZEPAM [Concomitant]
     Indication: ANXIETY
     Route: 048
  6. WARFARIN SODIUM [Concomitant]
     Indication: ANTICOAGULANT THERAPY
     Route: 048
  7. FUROSEMIDE [Concomitant]
     Indication: BLOOD PRESSURE
     Route: 048
  8. POTASSIUM CHLORIDE [Concomitant]
     Indication: MINERAL SUPPLEMENTATION
     Route: 048
  9. TRAMADOL HCL [Concomitant]
     Indication: PAIN
     Route: 048
  10. TIOTROPIUM BROMIDE [Concomitant]
     Indication: DYSPNOEA
     Route: 048
  11. ALBUTEROL SPIROS [Concomitant]
     Indication: DYSPNOEA
     Route: 048
  12. OXYGEN [Concomitant]
     Indication: DYSPNOEA
     Dosage: 1 L/NC
     Route: 045

REACTIONS (13)
  - ABDOMINAL PAIN [None]
  - BODY TEMPERATURE DECREASED [None]
  - CHILLS [None]
  - CYANOSIS [None]
  - DIARRHOEA [None]
  - HEPATIC INFECTION [None]
  - MALAISE [None]
  - NAUSEA [None]
  - PAIN IN EXTREMITY [None]
  - PANCREAS INFECTION [None]
  - PLATELET DISORDER [None]
  - PYREXIA [None]
  - SKIN DISCOLOURATION [None]
